FAERS Safety Report 9693968 (Version 1)
Quarter: 2013Q4

REPORT INFORMATION
  Report Type: Spontaneous
  Country: DE (occurrence: DE)
  Receive Date: 20131118
  Receipt Date: 20131118
  Transmission Date: 20140711
  Serious: Yes (Hospitalization, Other)
  Sender: FDA-Public Use
  Company Number: DE-TEVA-444343GER

PATIENT
  Sex: Male

DRUGS (1)
  1. CEFUROXIM-RATIOPHARM 250 MG FILMTABLETTEN [Suspect]
     Indication: NASOPHARYNGITIS
     Route: 048
     Dates: start: 2011, end: 2011

REACTIONS (4)
  - Pemphigus [Unknown]
  - Drug hypersensitivity [Unknown]
  - Oral mucosal blistering [Unknown]
  - Dysphonia [Unknown]
